FAERS Safety Report 9783719 (Version 2)
Quarter: 2014Q1

REPORT INFORMATION
  Report Type: Spontaneous
  Country: IT (occurrence: IT)
  Receive Date: 20131226
  Receipt Date: 20140327
  Transmission Date: 20141002
  Serious: Yes (Hospitalization)
  Sender: FDA-Public Use
  Company Number: IT-BAYER-2013-154271

PATIENT
  Age: 75 Year
  Sex: Female

DRUGS (5)
  1. CARDIOASPIRIN [Suspect]
     Dosage: DAILY DOSE 100 MG
     Route: 048
     Dates: start: 20100101, end: 20130201
  2. OPTALIDON [IBUPROFEN] [Concomitant]
     Dosage: DAILY DOSE 6 DF
  3. VITAMIN D [Concomitant]
  4. CALCIUM [Concomitant]
  5. STRONTIUM RANELATE [Concomitant]

REACTIONS (3)
  - Anaemia [Recovering/Resolving]
  - Gastrointestinal haemorrhage [Recovering/Resolving]
  - Gastrointestinal dysplasia [Recovering/Resolving]
